FAERS Safety Report 22225397 (Version 3)
Quarter: 2023Q2

REPORT INFORMATION
  Report Type: Report from Study
  Country: US (occurrence: US)
  Receive Date: 20230418
  Receipt Date: 20230524
  Transmission Date: 20230721
  Serious: Yes (Hospitalization)
  Sender: FDA-Public Use
  Company Number: US-SEATTLE GENETICS-2023SGN02968

PATIENT
  Age: 38 Year
  Sex: Female

DRUGS (4)
  1. TUCATINIB [Suspect]
     Active Substance: TUCATINIB
     Indication: Breast cancer female
     Dosage: UNK
     Route: 065
  2. TUCATINIB [Suspect]
     Active Substance: TUCATINIB
     Dosage: 150 MG
     Route: 065
  3. CAPECITABINE [Suspect]
     Active Substance: CAPECITABINE
     Indication: Breast cancer female
     Dosage: UNK
     Route: 065
  4. PREDNISONE [Concomitant]
     Active Substance: PREDNISONE
     Dosage: 80 MG
     Route: 065
     Dates: start: 202301

REACTIONS (9)
  - Electrolyte imbalance [Unknown]
  - Infection [Unknown]
  - Hypotension [Unknown]
  - Diarrhoea [Unknown]
  - Adverse drug reaction [Unknown]
  - Hepatic enzyme increased [Unknown]
  - pH body fluid abnormal [Unknown]
  - Blood glucose increased [Unknown]
  - Nausea [Unknown]

NARRATIVE: CASE EVENT DATE: 20230301
